FAERS Safety Report 9267560 (Version 2)
Quarter: 2013Q2

REPORT INFORMATION
  Report Type: Spontaneous
  Country: JP (occurrence: JP)
  Receive Date: 20130502
  Receipt Date: 20130605
  Transmission Date: 20140414
  Serious: Yes (Other)
  Sender: FDA-Public Use
  Company Number: JP-GLAXOSMITHKLINE-B0887750A

PATIENT
  Age: 74 Year
  Sex: Male

DRUGS (9)
  1. AVOLVE [Suspect]
     Indication: BENIGN PROSTATIC HYPERPLASIA
     Dosage: .5MG PER DAY
     Route: 048
     Dates: start: 20130424
  2. HARNAL [Concomitant]
     Indication: BENIGN PROSTATIC HYPERPLASIA
     Dosage: .2MG PER DAY
     Route: 048
     Dates: start: 20130424
  3. ARICEPT [Concomitant]
     Route: 048
  4. MEMARY [Concomitant]
     Route: 048
  5. GRAMALIL [Concomitant]
     Route: 048
  6. FEBURIC [Concomitant]
     Route: 048
  7. TAKEPRON [Concomitant]
     Route: 048
  8. JANUVIA [Concomitant]
     Route: 048
  9. METGLUCO [Concomitant]
     Route: 048

REACTIONS (1)
  - Haematochezia [Recovered/Resolved]
